FAERS Safety Report 5626841-0 (Version None)
Quarter: 2008Q1

REPORT INFORMATION
  Report Type: 
  Country: None (occurrence: None)
  Receive Date: 20080212
  Receipt Date: 20080130
  Transmission Date: 20080703
  Serious: Yes (Life-Threatening, Hospitalization)
  Sender: FDA-Public Use
  Company Number: 200801AGG00774

PATIENT
  Age: 53 Year
  Sex: Male

DRUGS (3)
  1. AGGRASTAT [Suspect]
     Indication: ACUTE MYOCARDIAL INFARCTION
     Dosage: 25 MCG/KG, 0.15 MCG/KG, INTRAVENOUS BOLUS, INTRAVENOUS DRIP
     Route: 040
     Dates: start: 20071022, end: 20071022
  2. AGGRASTAT [Suspect]
     Indication: ACUTE MYOCARDIAL INFARCTION
     Dosage: 25 MCG/KG, 0.15 MCG/KG, INTRAVENOUS BOLUS, INTRAVENOUS DRIP
     Route: 040
     Dates: start: 20071022, end: 20071023
  3. CLOPIDOGREL BISULFATE [Concomitant]

REACTIONS (2)
  - CARDIAC FAILURE [None]
  - THROMBOSIS IN DEVICE [None]
